FAERS Safety Report 16278998 (Version 2)
Quarter: 2019Q2

REPORT INFORMATION
  Report Type: Spontaneous
  Country: US (occurrence: US)
  Receive Date: 20190506
  Receipt Date: 20190513
  Transmission Date: 20190711
  Serious: No
  Sender: FDA-Public Use
  Company Number: US-BIOMARINAP-US-2019-123429

PATIENT
  Age: 35 Year
  Sex: Male
  Weight: 84.09 kg

DRUGS (1)
  1. PALYNZIQ [Suspect]
     Active Substance: PEGVALIASE-PQPZ
     Indication: PHENYLKETONURIA
     Dosage: 2.5 MILLIGRAM
     Route: 058
     Dates: start: 20190415

REACTIONS (4)
  - Injection site pain [Unknown]
  - Injection site erythema [Unknown]
  - Cellulitis [Unknown]
  - Injection site swelling [Unknown]

NARRATIVE: CASE EVENT DATE: 20190430
